FAERS Safety Report 23689813 (Version 1)
Quarter: 2024Q1

REPORT INFORMATION
  Report Type: Report from Study
  Country: AR (occurrence: AR)
  Receive Date: 20240331
  Receipt Date: 20240331
  Transmission Date: 20240410
  Serious: Yes (Other)
  Sender: FDA-Public Use
  Company Number: AR-ABBVIE-5696552

PATIENT
  Sex: Female

DRUGS (1)
  1. SKYRIZI [Suspect]
     Active Substance: RISANKIZUMAB-RZAA
     Indication: Psoriatic arthropathy
     Dosage: THERAPY END DATE 2024, 150 MILLIGRAM
     Route: 058
     Dates: start: 20240215

REACTIONS (14)
  - Toxicity to various agents [Unknown]
  - Erythema [Recovered/Resolved]
  - Urinary tract infection [Recovered/Resolved]
  - Fungal skin infection [Recovered/Resolved]
  - Bronchitis [Unknown]
  - Nausea [Recovered/Resolved]
  - Pain [Recovered/Resolved]
  - Dizziness [Recovered/Resolved]
  - Gastrointestinal inflammation [Recovering/Resolving]
  - Liver function test increased [Unknown]
  - Hepatotoxicity [Unknown]
  - Painful respiration [Not Recovered/Not Resolved]
  - Vaginal infection [Recovered/Resolved]
  - Discomfort [Unknown]

NARRATIVE: CASE EVENT DATE: 20240101
